FAERS Safety Report 17142100 (Version 1)
Quarter: 2019Q4

REPORT INFORMATION
  Report Type: Spontaneous
  Country: SK (occurrence: SK)
  Receive Date: 20191211
  Receipt Date: 20191211
  Transmission Date: 20200122
  Serious: Yes (Other)
  Sender: FDA-Public Use
  Company Number: SK-JNJFOC-20191145898

PATIENT
  Age: 64 Year
  Sex: Male

DRUGS (1)
  1. DARZALEX [Suspect]
     Active Substance: DARATUMUMAB
     Indication: PLASMA CELL MYELOMA
     Dosage: 6TH LINE.
     Route: 065
     Dates: start: 20190729

REACTIONS (5)
  - Intervertebral discitis [Unknown]
  - Spinal fracture [Unknown]
  - Medical device removal [Unknown]
  - Spinal cord abscess [Unknown]
  - Monoclonal gammopathy [Not Recovered/Not Resolved]

NARRATIVE: CASE EVENT DATE: 2019
